FAERS Safety Report 9772455 (Version 2)
Quarter: 2014Q1

REPORT INFORMATION
  Report Type: Spontaneous
  Country: US (occurrence: None)
  Receive Date: 20131217
  Receipt Date: 20140311
  Transmission Date: 20141002
  Serious: Yes (Other)
  Sender: FDA-Public Use
  Company Number: 20130700

PATIENT
  Age: 61 Year
  Sex: Female

DRUGS (6)
  1. VENOFER (IRON SUCROSE INJECTION, USP) (2340-10) 20 MG/ML [Suspect]
     Indication: ANAEMIA
     Dosage: 400MG OVER 2.5 HOURS
     Route: 042
     Dates: start: 20131127
  2. COUMADIN (WARFARIN) [Concomitant]
  3. INDERAL (PROPRANOLOL) [Concomitant]
  4. LYRICA (PREGABALIN) [Concomitant]
  5. SOMA (CARISOPRODOL) [Concomitant]
  6. CELEBREX (CELECOXIB) [Concomitant]

REACTIONS (5)
  - Off label use [None]
  - Drug hypersensitivity [None]
  - International normalised ratio increased [None]
  - Oedema peripheral [None]
  - Pain in extremity [None]
